FAERS Safety Report 7940148-8 (Version None)
Quarter: 2011Q4

REPORT INFORMATION
  Report Type: 
  Country: None (occurrence: None)
  Receive Date: 20111125
  Receipt Date: 20100414
  Transmission Date: 20120403
  Serious: Yes (Other)
  Sender: FDA-Public Use
  Company Number: PHHY2010TW23381

PATIENT
  Sex: Female

DRUGS (1)
  1. GLEEVEC [Suspect]
     Indication: CHRONIC MYELOID LEUKAEMIA
     Dosage: 400 MG, UNK
     Route: 048
     Dates: start: 20050301

REACTIONS (7)
  - PRURITUS [None]
  - LIP DISORDER [None]
  - OEDEMA [None]
  - SCOLIOSIS [None]
  - BACK PAIN [None]
  - HYPERSENSITIVITY [None]
  - DRY SKIN [None]
